FAERS Safety Report 14785070 (Version 4)
Quarter: 2018Q2

REPORT INFORMATION
  Report Type: Spontaneous
  Country: KG (occurrence: KG)
  Receive Date: 20180420
  Receipt Date: 20180627
  Transmission Date: 20180711
  Serious: Yes (Death, Other)
  Sender: FDA-Public Use
  Company Number: KG-ROCHE-2109863

PATIENT
  Age: 10 Year
  Sex: Female
  Weight: 29 kg

DRUGS (2)
  1. VANCOMYCIN [Suspect]
     Active Substance: VANCOMYCIN
     Indication: TOXIC SKIN ERUPTION
     Route: 041
     Dates: start: 20180404, end: 20180416
  2. ACTEMRA [Suspect]
     Active Substance: TOCILIZUMAB
     Indication: JUVENILE IDIOPATHIC ARTHRITIS
     Dosage: 12MG/KG
     Route: 041
     Dates: start: 20171120

REACTIONS (6)
  - Rash [Unknown]
  - Sepsis [Fatal]
  - Toxic skin eruption [Recovered/Resolved]
  - Seizure [Unknown]
  - Lice infestation [Recovered/Resolved]
  - Dermatitis atopic [Not Recovered/Not Resolved]

NARRATIVE: CASE EVENT DATE: 2018
